FAERS Safety Report 24648035 (Version 2)
Quarter: 2024Q4

REPORT INFORMATION
  Report Type: Spontaneous
  Country: FR (occurrence: FR)
  Receive Date: 20241121
  Receipt Date: 20241217
  Transmission Date: 20250115
  Serious: Yes (Hospitalization)
  Sender: SANOFI AVENTIS
  Company Number: None

PATIENT
  Age: 33 Year
  Sex: Male

DRUGS (4)
  1. IBUPROFEN [Suspect]
     Active Substance: IBUPROFEN
     Indication: Intentional overdose
     Dosage: 4800 MG, TOTAL (12 CP X 400 MG)
     Route: 048
     Dates: start: 20240929, end: 20240929
  2. IRBESARTAN [Suspect]
     Active Substance: IRBESARTAN
     Indication: Intentional overdose
     Dosage: 750 MG, TOTAL (10 CP X 75 MG)
     Route: 048
     Dates: start: 20240929, end: 20240929
  3. SILDENAFIL CITRATE [Suspect]
     Active Substance: SILDENAFIL CITRATE
     Indication: Intentional overdose
     Dosage: 250 MG, TOTAL (5 CP X 50 MG)
     Route: 048
     Dates: start: 20240929, end: 20240929
  4. NICARDIPINE HYDROCHLORIDE [Suspect]
     Active Substance: NICARDIPINE HYDROCHLORIDE
     Indication: Intentional overdose
     Dosage: 31 DF, TOTAL
     Route: 048
     Dates: start: 20240929, end: 20240929

REACTIONS (3)
  - Poisoning deliberate [Recovered/Resolved]
  - Hypotension [Recovered/Resolved]
  - Intentional overdose [Recovered/Resolved]

NARRATIVE: CASE EVENT DATE: 20240929
